FAERS Safety Report 15648522 (Version 2)
Quarter: 2019Q1

REPORT INFORMATION
  Report Type: Spontaneous
  Country: AU (occurrence: AU)
  Receive Date: 20181122
  Receipt Date: 20190208
  Transmission Date: 20190417
  Serious: Yes (Other)
  Sender: FDA-Public Use
  Company Number: AU-TEVA-2018-AU-970657

PATIENT
  Age: 75 Year
  Sex: Male

DRUGS (1)
  1. ROCON 50 MG/5ML [Suspect]
     Active Substance: ROCURONIUM BROMIDE
     Indication: MUSCLE RELAXANT THERAPY
     Dosage: 1.2MG/KG FOR ESTIMATED WEIGHT OF 100KG (120MG), 50 MG/5ML
     Route: 065
     Dates: start: 20181025, end: 20181025

REACTIONS (1)
  - Drug effect incomplete [Unknown]

NARRATIVE: CASE EVENT DATE: 20181025
